FAERS Safety Report 25223813 (Version 1)
Quarter: 2025Q2

REPORT INFORMATION
  Report Type: Spontaneous
  Country: US (occurrence: US)
  Receive Date: 20250422
  Receipt Date: 20250422
  Transmission Date: 20250717
  Serious: Yes (Other)
  Sender: MERCK SHARP & DOHME LLC
  Company Number: US-009507513-2276684

PATIENT
  Age: 63 Year
  Sex: Male

DRUGS (2)
  1. PEMBROLIZUMAB [Suspect]
     Active Substance: PEMBROLIZUMAB
     Indication: Anal squamous cell carcinoma
     Route: 065
  2. PEMBROLIZUMAB [Suspect]
     Active Substance: PEMBROLIZUMAB
     Indication: Anal squamous cell carcinoma
     Route: 065
     Dates: start: 202301, end: 202301

REACTIONS (3)
  - Cholangitis sclerosing [Recovering/Resolving]
  - Immune-mediated pancreatitis [Unknown]
  - Immune-mediated gastritis [Unknown]

NARRATIVE: CASE EVENT DATE: 20220801
